FAERS Safety Report 22295857 (Version 2)
Quarter: 2023Q2

REPORT INFORMATION
  Report Type: Spontaneous
  Country: US (occurrence: US)
  Receive Date: 20230508
  Receipt Date: 20230613
  Transmission Date: 20230721
  Serious: Yes (Hospitalization, Other)
  Sender: FDA-Public Use
  Company Number: US-GILEAD-2023-0627114

PATIENT
  Age: 68 Year
  Sex: Female
  Weight: 56.7 kg

DRUGS (9)
  1. YESCARTA [Suspect]
     Active Substance: AXICABTAGENE CILOLEUCEL
     Indication: Product used for unknown indication
     Dosage: UNK
     Route: 065
     Dates: start: 20230327, end: 20230327
  2. DEXAMETHASONE [Concomitant]
     Active Substance: DEXAMETHASONE
  3. TYLENOL [Concomitant]
     Active Substance: ACETAMINOPHEN
  4. BENADRYL [Concomitant]
     Active Substance: DIPHENHYDRAMINE HYDROCHLORIDE
  5. VALACYCLOVIR [Concomitant]
     Active Substance: VALACYCLOVIR HYDROCHLORIDE
  6. LEVETIRACETAM [Concomitant]
     Active Substance: LEVETIRACETAM
  7. FLUCONAZOLE [Concomitant]
     Active Substance: FLUCONAZOLE
  8. GABAPENTIN [Concomitant]
     Active Substance: GABAPENTIN
  9. MEROPENEM [Concomitant]
     Active Substance: MEROPENEM

REACTIONS (2)
  - Clostridium difficile infection [Recovered/Resolved]
  - Pyrexia [Recovered/Resolved]

NARRATIVE: CASE EVENT DATE: 20230401
